FAERS Safety Report 5070296-4 (Version None)
Quarter: 2006Q3

REPORT INFORMATION
  Report Type: 
  Country: None (occurrence: None)
  Receive Date: 20060802
  Receipt Date: 20060717
  Transmission Date: 20061208
  Serious: Yes (Other)
  Sender: FDA-Public Use
  Company Number: TRP-0757-2006

PATIENT
  Age: 51 Year
  Sex: Female
  Weight: 86.1834 kg

DRUGS (4)
  1. RIBASPHERE [Suspect]
     Indication: HEPATITIS C
     Dosage: DF PO
     Route: 048
     Dates: start: 20060106, end: 20060706
  2. PEG-INTRON [Suspect]
     Indication: HEPATITIS C
     Dosage: DF SC
     Route: 058
     Dates: start: 20060106, end: 20060706
  3. NAPROSYN [Concomitant]
  4. ZOLOFT [Concomitant]

REACTIONS (36)
  - ANAEMIA [None]
  - ANXIETY [None]
  - AORTIC DILATATION [None]
  - ARTHRALGIA [None]
  - ASTHENIA [None]
  - CHEST DISCOMFORT [None]
  - CRYING [None]
  - DECREASED APPETITE [None]
  - DEHYDRATION [None]
  - DEPRESSION [None]
  - DIZZINESS [None]
  - DRY MOUTH [None]
  - DYSPNOEA [None]
  - EAR DISORDER [None]
  - FATIGUE [None]
  - FEAR [None]
  - FEELING HOT AND COLD [None]
  - HYPERTENSION [None]
  - HYPOTRICHOSIS [None]
  - INCREASED TENDENCY TO BRUISE [None]
  - INJECTION SITE PAIN [None]
  - INSOMNIA [None]
  - JOINT SWELLING [None]
  - LEUKOPENIA [None]
  - MEMORY IMPAIRMENT [None]
  - MIDDLE EAR EFFUSION [None]
  - MOOD SWINGS [None]
  - MYALGIA [None]
  - NASAL DRYNESS [None]
  - NERVOUSNESS [None]
  - NEUTROPHIL PERCENTAGE DECREASED [None]
  - PANIC ATTACK [None]
  - SLUGGISHNESS [None]
  - TOOTH INFECTION [None]
  - VERTIGO [None]
  - WEIGHT DECREASED [None]
